FAERS Safety Report 5498308-4 (Version None)
Quarter: 2007Q4

REPORT INFORMATION
  Report Type: 
  Country: None (occurrence: None)
  Receive Date: 20071025
  Receipt Date: 20070427
  Transmission Date: 20080405
  Serious: No
  Sender: FDA-Public Use
  Company Number: A0649092A

PATIENT
  Age: 79 Year
  Sex: Female

DRUGS (11)
  1. ADVAIR DISKUS 100/50 [Suspect]
     Indication: CHRONIC OBSTRUCTIVE PULMONARY DISEASE
     Dosage: 1PUFF TWICE PER DAY
     Route: 055
     Dates: start: 20061215
  2. SPIRIVA [Concomitant]
  3. DIOVAN HCT [Concomitant]
  4. FOSAMAX [Concomitant]
  5. DETROL [Concomitant]
  6. CENTRUM SILVER [Concomitant]
  7. CALCIUM [Concomitant]
  8. ASPIRIN [Concomitant]
  9. ZANTAC [Concomitant]
  10. METAMUCIL [Concomitant]
  11. STOOL SOFTENER [Concomitant]

REACTIONS (1)
  - CANDIDIASIS [None]
